FAERS Safety Report 9495869 (Version 2)
Quarter: 2013Q3

REPORT INFORMATION
  Report Type: Report from Study
  Country: US (occurrence: US)
  Receive Date: 20130903
  Receipt Date: 20130903
  Transmission Date: 20140515
  Serious: Yes (Hospitalization, Other)
  Sender: FDA-Public Use
  Company Number: US-ASTRAZENECA-2013SE57950

PATIENT
  Age: 82 Year
  Sex: Female
  Weight: 91.6 kg

DRUGS (4)
  1. BRILINTA [Suspect]
     Route: 048
     Dates: start: 20130716, end: 20130723
  2. ADALAT [Concomitant]
     Indication: HYPERTENSION
  3. ASPIRIN [Concomitant]
     Indication: ANTICOAGULANT THERAPY
     Dates: start: 20130716
  4. BENICAR [Concomitant]
     Indication: HYPERTENSION

REACTIONS (3)
  - Drug intolerance [Unknown]
  - Haemorrhage [Unknown]
  - Haematochezia [Unknown]
